FAERS Safety Report 12271852 (Version 2)
Quarter: 2016Q2

REPORT INFORMATION
  Report Type: Spontaneous
  Country: US (occurrence: US)
  Receive Date: 20160415
  Receipt Date: 20160415
  Transmission Date: 20160815
  Serious: No
  Sender: FDA-Public Use
  Company Number: US-NOVOPROD-483995

PATIENT
  Age: 36 Year
  Sex: Male
  Weight: 154.2 kg

DRUGS (2)
  1. SAXENDA [Suspect]
     Active Substance: LIRAGLUTIDE
     Indication: PRODUCT USED FOR UNKNOWN INDICATION
     Route: 058
  2. VICTOZA [Suspect]
     Active Substance: LIRAGLUTIDE
     Indication: PRODUCT USED FOR UNKNOWN INDICATION
     Route: 058
     Dates: start: 201512

REACTIONS (5)
  - Weight loss poor [Unknown]
  - Injection site erythema [Unknown]
  - Off label use [Unknown]
  - Injection site urticaria [Unknown]
  - Fatigue [Unknown]
